FAERS Safety Report 4535674-8 (Version None)
Quarter: 2004Q4

REPORT INFORMATION
  Report Type: 
  Country: None (occurrence: None)
  Receive Date: 20041223
  Receipt Date: 20031111
  Transmission Date: 20050328
  Serious: No
  Sender: FDA-Public Use
  Company Number: US-GLAXOSMITHKLINE-A0439239A

PATIENT
  Age: 49 Year
  Sex: Female

DRUGS (1)
  1. FLONASE [Suspect]
     Route: 045
     Dates: start: 19990101

REACTIONS (2)
  - NASAL CONGESTION [None]
  - PHARMACEUTICAL PRODUCT COMPLAINT [None]
